FAERS Safety Report 9962636 (Version 1)
Quarter: 2014Q1

REPORT INFORMATION
  Report Type: Report from Study
  Country: US (occurrence: US)
  Receive Date: 20140305
  Receipt Date: 20140305
  Transmission Date: 20141002
  Serious: No
  Sender: FDA-Public Use
  Company Number: US-ABBVIE-13P-163-1112440-00

PATIENT
  Age: 33 Year
  Sex: Female
  Weight: 62.65 kg

DRUGS (5)
  1. HUMIRA [Suspect]
     Indication: CROHN^S DISEASE
     Route: 058
     Dates: start: 201306
  2. HUMIRA [Suspect]
     Route: 058
     Dates: start: 201304, end: 201306
  3. AYGESTIN [Concomitant]
     Indication: CONTRACEPTION
  4. LEXAPRO [Concomitant]
     Indication: PRODUCT USED FOR UNKNOWN INDICATION
  5. NORCO [Concomitant]
     Indication: PRODUCT USED FOR UNKNOWN INDICATION

REACTIONS (3)
  - Endometriosis [Unknown]
  - Urinary tract infection [Unknown]
  - Abdominal pain [Unknown]
